FAERS Safety Report 9540799 (Version 1)
Quarter: 2013Q3

REPORT INFORMATION
  Report Type: Spontaneous
  Country: UG (occurrence: UG)
  Receive Date: 20130920
  Receipt Date: 20130920
  Transmission Date: 20140515
  Serious: Yes (Death, Other)
  Sender: FDA-Public Use
  Company Number: PHHY2013UG103488

PATIENT
  Sex: 0

DRUGS (2)
  1. METOPROLOL [Suspect]
     Route: 064
  2. HYDRALAZINE [Suspect]
     Route: 064

REACTIONS (3)
  - Death [Fatal]
  - Premature baby [Not Recovered/Not Resolved]
  - Foetal exposure during pregnancy [Unknown]
